FAERS Safety Report 26043900 (Version 1)
Quarter: 2025Q4

REPORT INFORMATION
  Report Type: Spontaneous
  Country: US (occurrence: US)
  Receive Date: 20251114
  Receipt Date: 20251114
  Transmission Date: 20260117
  Serious: Yes (Hospitalization, Other)
  Sender: BANNER
  Company Number: None

PATIENT
  Age: 38 Year
  Sex: Male

DRUGS (2)
  1. IBUPROFEN [Suspect]
     Active Substance: IBUPROFEN
     Indication: Pain
     Dosage: LARGE, UNKNOWN QUANTITIES
  2. ACETAMINOPHEN [Suspect]
     Active Substance: ACETAMINOPHEN
     Indication: Pain
     Dosage: LARGE, UNKNOWN QUANTITIES

REACTIONS (5)
  - Liver injury [Recovering/Resolving]
  - Renal tubular necrosis [Recovering/Resolving]
  - Intentional product use issue [Recovering/Resolving]
  - Parvimonas micra infection [Recovered/Resolved]
  - Bacteraemia [Recovered/Resolved]
